FAERS Safety Report 9735683 (Version 1)
Quarter: 2013Q4

REPORT INFORMATION
  Report Type: Spontaneous
  Country: US (occurrence: None)
  Receive Date: 20131204
  Receipt Date: 20131204
  Transmission Date: 20140711
  Serious: Yes (Hospitalization)
  Sender: FDA-Public Use
  Company Number: AUR-APL-2013-09929

PATIENT
  Age: 61 Year
  Sex: Male

DRUGS (2)
  1. GABAPENTIN (GABAPENTIN) [Suspect]
  2. OXYCODONE (OXYCODONE) [Suspect]

REACTIONS (9)
  - Drug withdrawal syndrome [None]
  - Nausea [None]
  - Vomiting [None]
  - Myalgia [None]
  - Restlessness [None]
  - Blood pressure increased [None]
  - Confusional state [None]
  - Hyperhidrosis [None]
  - Tremor [None]
